FAERS Safety Report 17730750 (Version 2)
Quarter: 2021Q1

REPORT INFORMATION
  Report Type: Spontaneous
  Country: DE (occurrence: DE)
  Receive Date: 20200430
  Receipt Date: 20210202
  Transmission Date: 20210419
  Serious: Yes (Other)
  Sender: FDA-Public Use
  Company Number: DE-ABBVIE-20K-062-3323664-00

PATIENT
  Age: 34 Year
  Sex: Female

DRUGS (23)
  1. CYTARABIN [Suspect]
     Active Substance: CYTARABINE
     Indication: ACUTE MYELOID LEUKAEMIA REFRACTORY
     Dosage: 1 G/M2
     Route: 065
  2. CLEXANE [Concomitant]
     Active Substance: ENOXAPARIN SODIUM
     Dosage: 40MG/0.4ML
     Dates: start: 20200201, end: 20200218
  3. UCCH POTASSIUM CHLORIDE [Concomitant]
     Dates: start: 20200131, end: 20200131
  4. FOLVERLAN [Concomitant]
     Active Substance: FOLIC ACID
     Indication: PRODUCT USED FOR UNKNOWN INDICATION
     Dates: start: 20200109, end: 20200222
  5. VENCLYXTO [Suspect]
     Active Substance: VENETOCLAX
     Indication: ACUTE MYELOID LEUKAEMIA
     Route: 048
     Dates: start: 20200206, end: 20200206
  6. VENCLYXTO [Suspect]
     Active Substance: VENETOCLAX
     Route: 048
     Dates: start: 20200207, end: 20200207
  7. VENCLYXTO [Suspect]
     Active Substance: VENETOCLAX
     Route: 048
     Dates: start: 20200208, end: 20200222
  8. CLEXANE [Concomitant]
     Active Substance: ENOXAPARIN SODIUM
     Indication: PRODUCT USED FOR UNKNOWN INDICATION
     Dosage: 40MG/0.4ML
     Dates: start: 20200109, end: 20200122
  9. KALINOR RETARD P [Concomitant]
     Active Substance: POTASSIUM CHLORIDE
     Dates: start: 20200123, end: 20200123
  10. UCCH POTASSIUM CHLORIDE [Concomitant]
     Indication: PRODUCT USED FOR UNKNOWN INDICATION
     Dosage: 40MG/40ML
     Dates: start: 20200125, end: 20200125
  11. UCCH POTASSIUM CHLORIDE [Concomitant]
     Dates: start: 20200208, end: 20200208
  12. AMBISONE [Concomitant]
     Active Substance: AMPHOTERICIN B
     Indication: PRODUCT USED FOR UNKNOWN INDICATION
     Dosage: 4 BOTTLE
     Dates: start: 20200201, end: 20200222
  13. AZACITIDINE. [Concomitant]
     Active Substance: AZACITIDINE
     Indication: ACUTE MYELOID LEUKAEMIA
  14. KALINOR RETARD P [Concomitant]
     Active Substance: POTASSIUM CHLORIDE
     Dates: start: 20200212, end: 20200212
  15. UCCH POTASSIUM CHLORIDE [Concomitant]
     Dates: start: 20200209, end: 20200209
  16. CEFTAZIDINA [Concomitant]
     Dosage: 3 BOTTLE
     Dates: start: 20200126, end: 20200126
  17. MITOXANTRONE [Suspect]
     Active Substance: MITOXANTRONE HYDROCHLORIDE
     Indication: ACUTE MYELOID LEUKAEMIA REFRACTORY
     Route: 065
  18. CEFTAZIDINA [Concomitant]
     Indication: PRODUCT USED FOR UNKNOWN INDICATION
     Dosage: 2 BOTTLE
     Dates: start: 20200125, end: 20200125
  19. ACIC [Concomitant]
     Active Substance: ACYCLOVIR
     Indication: PRODUCT USED FOR UNKNOWN INDICATION
     Dates: start: 20200209, end: 20200222
  20. KALINOR RETARD P [Concomitant]
     Active Substance: POTASSIUM CHLORIDE
     Indication: PRODUCT USED FOR UNKNOWN INDICATION
     Dates: start: 20200118, end: 20200118
  21. UCCH POTASSIUM CHLORIDE [Concomitant]
     Dates: start: 20200204, end: 20200204
  22. CEFTAZIDINA [Concomitant]
     Dosage: 3 BOTTLE
     Dates: start: 20200116, end: 20200119
  23. CEFTAZIDINA [Concomitant]
     Dosage: 2 BOTTLE
     Dates: start: 20200220, end: 20200220

REACTIONS (7)
  - Live birth [Unknown]
  - Off label use [Unknown]
  - Maternal exposure during pregnancy [Unknown]
  - Premature delivery [Recovered/Resolved]
  - Therapeutic response unexpected [Unknown]
  - Pyrexia [Unknown]
  - Neutropenia [Unknown]

NARRATIVE: CASE EVENT DATE: 202002
